FAERS Safety Report 8827734 (Version 1)
Quarter: 2012Q4

REPORT INFORMATION
  Report Type: Report from Study
  Country: US (occurrence: US)
  Receive Date: 20121005
  Receipt Date: 20121005
  Transmission Date: 20130627
  Serious: Yes (Other)
  Sender: FDA-Public Use
  Company Number: US-JNJFOC-20120912752

PATIENT
  Age: 52 Year
  Sex: Female
  Weight: 68.04 kg

DRUGS (2)
  1. SIMPONI [Suspect]
     Indication: RHEUMATOID ARTHRITIS
     Route: 058
     Dates: start: 20120920
  2. MOTRIN [Concomitant]
     Route: 048
     Dates: end: 2012

REACTIONS (1)
  - Postmenopausal haemorrhage [Not Recovered/Not Resolved]
